FAERS Safety Report 14786186 (Version 5)
Quarter: 2019Q2

REPORT INFORMATION
  Report Type: Report from Study
  Country: CA (occurrence: CA)
  Receive Date: 20180420
  Receipt Date: 20190625
  Transmission Date: 20190711
  Serious: Yes (Hospitalization, Other)
  Sender: FDA-Public Use
  Company Number: CA-BRISTOL-MYERS SQUIBB COMPANY-BMS-2018-016261

PATIENT
  Age: 84 Year
  Sex: Female

DRUGS (1)
  1. ABATACEPT [Suspect]
     Active Substance: ABATACEPT
     Indication: RHEUMATOID ARTHRITIS
     Dosage: 750 MG, Q4WK
     Route: 042
     Dates: start: 20160118

REACTIONS (5)
  - Urinary tract infection [Unknown]
  - Herpes zoster [Unknown]
  - Pneumonia klebsiella [Unknown]
  - Pyelonephritis [Unknown]
  - Vein disorder [Unknown]

NARRATIVE: CASE EVENT DATE: 20180216
